FAERS Safety Report 6487456-8 (Version None)
Quarter: 2009Q4

REPORT INFORMATION
  Report Type: 
  Country: None (occurrence: None)
  Receive Date: 20091210
  Receipt Date: 20091207
  Transmission Date: 20100525
  Serious: Yes (Hospitalization)
  Sender: FDA-Public Use
  Company Number: FR-WYE-G05072609

PATIENT
  Age: 68 Year
  Sex: Male

DRUGS (4)
  1. RHINADVIL [Suspect]
     Indication: RHINITIS ALLERGIC
     Dosage: UNKNOWN
     Route: 048
     Dates: start: 20091007, end: 20091024
  2. FENOFIBRATE [Suspect]
     Route: 048
     Dates: start: 20000101, end: 20091001
  3. LANSOPRAZOLE [Suspect]
     Route: 048
     Dates: start: 20080101, end: 20091024
  4. KESTINE [Suspect]
     Indication: RHINITIS ALLERGIC
     Dosage: UNKNOWN
     Route: 048
     Dates: start: 20091007, end: 20091024

REACTIONS (5)
  - CYTOLYTIC HEPATITIS [None]
  - HEPATITIS [None]
  - JAUNDICE CHOLESTATIC [None]
  - SERUM FERRITIN INCREASED [None]
  - TRANSFERRIN SATURATION INCREASED [None]
